FAERS Safety Report 4431448-7 (Version None)
Quarter: 2004Q3

REPORT INFORMATION
  Report Type: 
  Country: None (occurrence: None)
  Receive Date: 20040820
  Receipt Date: 20040820
  Transmission Date: 20050211
  Serious: Yes (Hospitalization)
  Sender: FDA-Public Use
  Company Number: None

PATIENT
  Age: 72 Year
  Sex: Female
  Weight: 88.905 kg

DRUGS (19)
  1. CARBOPLATIN [Suspect]
     Indication: NON-SMALL CELL LUNG CANCER
     Dosage: 500MG IV Q 3 WEEKS
     Route: 042
     Dates: start: 20040617
  2. CARBOPLATIN [Suspect]
     Indication: NON-SMALL CELL LUNG CANCER
     Dosage: 500MG IV Q 3 WEEKS
     Route: 042
     Dates: start: 20040714
  3. CARBOPLATIN [Suspect]
     Indication: NON-SMALL CELL LUNG CANCER
     Dosage: 500MG IV Q 3 WEEKS
     Route: 042
     Dates: start: 20040804
  4. GEMZAR [Suspect]
     Indication: NON-SMALL CELL LUNG CANCER
     Dosage: 1790 MG IV D1 AND D8
     Route: 042
     Dates: start: 20040617
  5. GEMZAR [Suspect]
     Indication: NON-SMALL CELL LUNG CANCER
     Dosage: 1790 MG IV D1 AND D8
     Route: 042
     Dates: start: 20040624
  6. GEMZAR [Suspect]
     Indication: NON-SMALL CELL LUNG CANCER
     Dosage: 1790 MG IV D1 AND D8
     Route: 042
     Dates: start: 20040714
  7. GEMZAR [Suspect]
     Indication: NON-SMALL CELL LUNG CANCER
     Dosage: 1790 MG IV D1 AND D8
     Route: 042
     Dates: start: 20040721
  8. GEMZAR [Suspect]
     Indication: NON-SMALL CELL LUNG CANCER
     Dosage: 1790 MG IV D1 AND D8
     Route: 042
     Dates: start: 20040804
  9. GEMZAR [Suspect]
     Indication: NON-SMALL CELL LUNG CANCER
     Dosage: 1790 MG IV D1 AND D8
     Route: 042
     Dates: start: 20040811
  10. SYNTHROID [Concomitant]
  11. LOTREL [Concomitant]
  12. DIOVAN [Concomitant]
  13. TOPROL-XL [Concomitant]
  14. LASIX [Concomitant]
  15. LIPITOR [Concomitant]
  16. NEXIUM [Concomitant]
  17. POTASSIUM [Concomitant]
  18. CELEXA [Concomitant]
  19. DEXAMETHASONE [Concomitant]

REACTIONS (3)
  - ANAEMIA [None]
  - CHEST PAIN [None]
  - PYREXIA [None]
